FAERS Safety Report 6446802-1 (Version None)
Quarter: 2009Q4

REPORT INFORMATION
  Report Type: 
  Country: None (occurrence: None)
  Receive Date: 20091119
  Receipt Date: 20091110
  Transmission Date: 20100525
  Serious: Yes (Other)
  Sender: FDA-Public Use
  Company Number: PHEH2009US15565

PATIENT
  Sex: Male

DRUGS (1)
  1. ZOMETA [Suspect]
     Dosage: UNK, UNK
     Route: 065

REACTIONS (3)
  - OSTEOMYELITIS [None]
  - OSTEONECROSIS [None]
  - TOOTH DISORDER [None]
